FAERS Safety Report 20086548 (Version 1)
Quarter: 2021Q4

REPORT INFORMATION
  Report Type: Spontaneous
  Country: US (occurrence: None)
  Receive Date: 20211118
  Receipt Date: 20211118
  Transmission Date: 20220303
  Serious: Yes (Hospitalization)
  Sender: FDA-Public Use
  Company Number: None

PATIENT
  Age: 58 Year
  Sex: Male
  Weight: 91.6 kg

DRUGS (6)
  1. EMPAGLIFLOZIN [Suspect]
     Active Substance: EMPAGLIFLOZIN
     Dosage: FREQUENCY : DAILY;?
     Route: 048
     Dates: start: 20211114, end: 20211117
  2. dulaglutide 3 mg per week [Concomitant]
  3. metformin 1000 mg twice daily [Concomitant]
  4. rosuvastatin 5 mg daily [Concomitant]
  5. lisinopril 10mg daily [Concomitant]
  6. synthroid 175 mcg once daily [Concomitant]

REACTIONS (2)
  - Euglycaemic diabetic ketoacidosis [None]
  - Diarrhoea [None]

NARRATIVE: CASE EVENT DATE: 20211117
